FAERS Safety Report 4634419-0 (Version None)
Quarter: 2005Q2

REPORT INFORMATION
  Report Type: 
  Country: None (occurrence: None)
  Receive Date: 20050411
  Receipt Date: 20050329
  Transmission Date: 20051028
  Serious: Yes (Hospitalization)
  Sender: FDA-Public Use
  Company Number: HQWYE028225OCT04

PATIENT
  Age: 66 Year
  Sex: Male

DRUGS (3)
  1. EUPANTOL (PANTOPRAZOLE, TABLET, DELAYED RELEASE) [Suspect]
     Dosage: SOME DOSE FORM SOMETIMES
     Route: 048
     Dates: end: 20040922
  2. TAHOR (ATORVASTATIN) [Concomitant]
  3. HERBAL PREPARATION (HERBAL PREPARATION) [Concomitant]

REACTIONS (2)
  - AUTOIMMUNE HEPATITIS [None]
  - CHROMATURIA [None]
